FAERS Safety Report 9163124 (Version 2)
Quarter: 2013Q1

REPORT INFORMATION
  Report Type: Spontaneous
  Country: AT (occurrence: None)
  Receive Date: 20130215
  Receipt Date: 20130221
  Transmission Date: 20140127
  Serious: Yes (Hospitalization)
  Sender: FDA-Public Use
  Company Number: 2013-016501

PATIENT
  Age: 83 Year
  Sex: Male

DRUGS (3)
  1. AFLIBERCEPT [Suspect]
     Indication: AGE-RELATED MACULAR DEGENERATION
     Dates: start: 20130204
  2. PLAVIX (CLOPIDOGREL) [Concomitant]
  3. WARFARIN (WARFARIN) [Concomitant]

REACTIONS (2)
  - Cerebrovascular accident [None]
  - Subdural haematoma [None]
